FAERS Safety Report 4885908-5 (Version None)
Quarter: 2006Q1

REPORT INFORMATION
  Report Type: 
  Country: None (occurrence: None)
  Receive Date: 20060120
  Receipt Date: 20060109
  Transmission Date: 20060701
  Serious: Yes (Hospitalization)
  Sender: FDA-Public Use
  Company Number: AU-ROCHE-431090

PATIENT
  Age: 88 Year
  Sex: Male

DRUGS (1)
  1. CEFTRIAXONE SODIUM [Suspect]
     Route: 042
     Dates: start: 20041129, end: 20041129

REACTIONS (2)
  - RASH MACULO-PAPULAR [None]
  - VASCULITIS [None]
